FAERS Safety Report 18721734 (Version 2)
Quarter: 2021Q1

REPORT INFORMATION
  Report Type: Spontaneous
  Country: US (occurrence: US)
  Receive Date: 20210110
  Receipt Date: 20210205
  Transmission Date: 20210419
  Serious: Yes (Other)
  Sender: FDA-Public Use
  Company Number: US-TEVA-2020-US-1865170

PATIENT
  Age: 15 Year
  Sex: Male

DRUGS (4)
  1. FLUTICASONE?PROPIONATE [Suspect]
     Active Substance: FLUTICASONE PROPIONATE
     Indication: ASTHMA
     Dosage: 110MCG TWO PUFFS TWICE A DAY (440 MCG/DAY)
     Route: 050
  2. FLUTICASONE?PROPIONATE [Suspect]
     Active Substance: FLUTICASONE PROPIONATE
     Indication: EOSINOPHILIC OESOPHAGITIS
     Dosage: 440 MICROGRAM DAILY; SCHEDULED TO RECEIVE FLUTICASONE PROPIONATE 110MCG TWO PUFFS TWICE A DAY (440 M
     Route: 061
  3. HYDROCORTISONE. [Suspect]
     Active Substance: HYDROCORTISONE
     Indication: ECZEMA
     Route: 061
  4. TRIAMCINOLONE [Suspect]
     Active Substance: TRIAMCINOLONE
     Indication: RHINITIS ALLERGIC
     Dosage: 220 MICROGRAM DAILY; 55MCG TWO SPRAYS TWICE A DAY
     Route: 045

REACTIONS (1)
  - Adrenal suppression [Unknown]
